FAERS Safety Report 4330391-1 (Version None)
Quarter: 2004Q2

REPORT INFORMATION
  Report Type: 
  Country: None (occurrence: None)
  Receive Date: 20040402
  Receipt Date: 20040325
  Transmission Date: 20050107
  Serious: Yes (Hospitalization)
  Sender: FDA-Public Use
  Company Number: 200411296FR

PATIENT
  Age: 77 Year
  Sex: Female
  Weight: 92 kg

DRUGS (5)
  1. LASILIX SPECIAL [Suspect]
     Indication: CARDIOMYOPATHY
     Route: 048
  2. ZESTRIL [Suspect]
     Indication: ESSENTIAL HYPERTENSION
     Route: 048
  3. ALDACTONE [Suspect]
     Route: 048
  4. DIAFUSOR [Concomitant]
     Route: 048
  5. KARDEGIC 160 MG [Concomitant]
     Indication: ESSENTIAL HYPERTENSION
     Route: 048

REACTIONS (7)
  - CARDIAC DISORDER [None]
  - CONDITION AGGRAVATED [None]
  - DRUG INTERACTION [None]
  - DYSPNOEA [None]
  - OEDEMA [None]
  - ORTHOPNOEA [None]
  - RENAL FAILURE ACUTE [None]
